FAERS Safety Report 4457969-9 (Version None)
Quarter: 2004Q3

REPORT INFORMATION
  Report Type: 
  Country: None (occurrence: None)
  Receive Date: 20040922
  Receipt Date: 20040916
  Transmission Date: 20050211
  Serious: Yes (Hospitalization)
  Sender: FDA-Public Use
  Company Number: EWC040840138

PATIENT
  Age: 66 Year
  Sex: Male
  Weight: 63 kg

DRUGS (7)
  1. GEMCITABINE HYDROCHLORIDE-IV (GEMCITABINE) [Suspect]
     Indication: LUNG NEOPLASM MALIGNANT
     Dosage: 1250 MG/2 OTHER
     Dates: start: 20040603, end: 20040722
  2. ZOFRAN [Concomitant]
  3. DEXAMETHASONE [Concomitant]
  4. CODEINE [Concomitant]
  5. MAGMIL (MAGNESIUM HYDROXIDE) [Concomitant]
  6. ZOLPIDEM TARTRATE [Concomitant]
  7. PREDNISOLONE [Concomitant]

REACTIONS (18)
  - ALANINE AMINOTRANSFERASE INCREASED [None]
  - ASPARTATE AMINOTRANSFERASE INCREASED [None]
  - BLOOD BICARBONATE INCREASED [None]
  - BLOOD PH INCREASED [None]
  - BLOOD PRESSURE SYSTOLIC INCREASED [None]
  - GENERAL PHYSICAL HEALTH DETERIORATION [None]
  - HAEMOGLOBIN DECREASED [None]
  - HEART RATE DECREASED [None]
  - OEDEMA [None]
  - ORAL CANDIDIASIS [None]
  - PLATELET COUNT DECREASED [None]
  - PNEUMOCYSTIS CARINII PNEUMONIA [None]
  - PNEUMOMEDIASTINUM [None]
  - PNEUMOTHORAX [None]
  - RADIATION PNEUMONITIS [None]
  - STAPHYLOCOCCAL INFECTION [None]
  - SUBCUTANEOUS EMPHYSEMA [None]
  - SWELLING FACE [None]
